FAERS Safety Report 9754592 (Version 1)
Quarter: 2013Q4

REPORT INFORMATION
  Report Type: Spontaneous
  Country: US (occurrence: US)
  Receive Date: 20131213
  Receipt Date: 20131213
  Transmission Date: 20140711
  Serious: Yes (Other)
  Sender: FDA-Public Use
  Company Number: US-PFIZER INC-2013355424

PATIENT
  Age: 65 Year
  Sex: Female

DRUGS (2)
  1. DEPO-MEDROL [Suspect]
     Indication: MUSCULOSKELETAL PAIN
     Dosage: UNK
  2. DEPO-MEDROL [Suspect]
     Indication: ARTHRALGIA

REACTIONS (2)
  - Rotator cuff syndrome [Unknown]
  - Hypersensitivity [Unknown]
